FAERS Safety Report 5004393-6 (Version None)
Quarter: 2006Q2

REPORT INFORMATION
  Report Type: 
  Country: None (occurrence: None)
  Receive Date: 20060511
  Receipt Date: 20060502
  Transmission Date: 20061013
  Serious: Yes (Other)
  Sender: FDA-Public Use
  Company Number: US-2006-010674

PATIENT
  Age: 25 Year
  Sex: Female
  Weight: 109 kg

DRUGS (1)
  1. MIRENA [Suspect]
     Indication: CONTRACEPTION
     Dosage: 20 UG/DAY, CONT, INTRA-UTERINE
     Route: 015
     Dates: start: 20030101

REACTIONS (4)
  - BENIGN INTRACRANIAL HYPERTENSION [None]
  - MIGRAINE [None]
  - VISUAL DISTURBANCE [None]
  - VISUAL FIELD DEFECT [None]
